FAERS Safety Report 6041192-0 (Version None)
Quarter: 2009Q1

REPORT INFORMATION
  Report Type: 
  Country: None (occurrence: None)
  Receive Date: 20090116
  Receipt Date: 20080912
  Transmission Date: 20090719
  Serious: No
  Sender: FDA-Public Use
  Company Number: US-BRISTOL-MYERS SQUIBB COMPANY-14335327

PATIENT

DRUGS (2)
  1. ABILIFY [Suspect]
     Dosage: ALSO TAKEN AS CONMED (ABILIFY 40).
  2. LEXAPRO [Concomitant]

REACTIONS (1)
  - HALLUCINATION [None]
